FAERS Safety Report 8160220-X (Version None)
Quarter: 2012Q1

REPORT INFORMATION
  Report Type: 
  Country: None (occurrence: None)
  Receive Date: 20120223
  Receipt Date: 20120216
  Transmission Date: 20120608
  Serious: Yes (Hospitalization)
  Sender: FDA-Public Use
  Company Number: DE-PFIZER INC-2012041990

PATIENT
  Age: 40 Year
  Sex: Female
  Weight: 63.9 kg

DRUGS (8)
  1. ATRACURIUM BESYLATE [Suspect]
     Dosage: 90MG/30MG DAILY DOSE
     Dates: start: 20111011, end: 20111026
  2. IDARUBICIN HCL [Suspect]
     Dosage: 22.22 MG, 1X/DAY (DAILY DOSE)
     Dates: start: 20111006, end: 20111008
  3. VFEND [Concomitant]
     Indication: PROPHYLAXIS
     Dosage: 200 MG, 1-1-1
     Route: 048
     Dates: start: 20111010
  4. CYTARABINE [Suspect]
     Dosage: 185 MG, 1X/DAY (DAILY DOSE)
     Dates: start: 20111006, end: 20111012
  5. COTRIM DS [Concomitant]
     Indication: INFECTION PROPHYLAXIS
     Dosage: 960 MG, MONDAY, WEDNESDAY, FRIDAY 0-1-0
     Route: 048
     Dates: start: 20110902
  6. ETOPOSIDE [Suspect]
     Dosage: 185 MG, 1X/DAY (DAILY DOSE)
     Dates: start: 20111006, end: 20111008
  7. ACICLOVIR [Concomitant]
     Indication: PROPHYLAXIS
     Dosage: 200 MG, 1-1-1-1
     Route: 048
     Dates: start: 20110902
  8. GEMTUZUMAB OZOGAMICIN [Suspect]
     Indication: ACUTE MYELOID LEUKAEMIA
     Dosage: 5.55 MG, 1X/DAY (DAILY DOSE)
     Dates: start: 20111006, end: 20111006

REACTIONS (1)
  - PANCYTOPENIA [None]
